FAERS Safety Report 11749371 (Version 1)
Quarter: 2015Q4

REPORT INFORMATION
  Report Type: Report from Study
  Country: DE (occurrence: DE)
  Receive Date: 20151118
  Receipt Date: 20151118
  Transmission Date: 20160304
  Serious: Yes (Hospitalization, Other)
  Sender: FDA-Public Use
  Company Number: PHHY2014DE175894

PATIENT
  Age: 56 Year
  Sex: Male
  Weight: 81 kg

DRUGS (2)
  1. PAZOPANIB [Suspect]
     Active Substance: PAZOPANIB
     Indication: RENAL CELL CARCINOMA
     Dosage: 400 MG, UNK
     Route: 065
     Dates: start: 20120806, end: 20140630
  2. PAZOPANIB [Suspect]
     Active Substance: PAZOPANIB
     Dosage: UNK
     Route: 065
     Dates: start: 20141024

REACTIONS (1)
  - Osteonecrosis of jaw [Not Recovered/Not Resolved]

NARRATIVE: CASE EVENT DATE: 20140630
